FAERS Safety Report 18924740 (Version 1)
Quarter: 2021Q1

REPORT INFORMATION
  Report Type: Spontaneous
  Country: IR (occurrence: OM)
  Receive Date: 20210223
  Receipt Date: 20210223
  Transmission Date: 20210420
  Serious: Yes (Hospitalization, Other)
  Sender: FDA-Public Use
  Company Number: IR-TWI PHARMACEUTICAL, INC-2021SCTW000010

PATIENT

DRUGS (1)
  1. TESTOSTERONE GEL [Suspect]
     Active Substance: TESTOSTERONE
     Indication: PRODUCT USED FOR UNKNOWN INDICATION
     Dosage: 250 MG, WEEKLY
     Route: 065

REACTIONS (4)
  - Aortic dilatation [Recovered/Resolved]
  - Pericardial haemorrhage [Recovered/Resolved]
  - Aortic dissection [Recovered/Resolved]
  - Aortic valve incompetence [Recovered/Resolved]
